FAERS Safety Report 14447214 (Version 1)
Quarter: 2018Q1

REPORT INFORMATION
  Report Type: Spontaneous
  Country: US (occurrence: US)
  Receive Date: 20180126
  Receipt Date: 20180126
  Transmission Date: 20180509
  Serious: Yes (Death)
  Sender: FDA-Public Use
  Company Number: None

PATIENT
  Sex: Female

DRUGS (24)
  1. XANAX [Concomitant]
     Active Substance: ALPRAZOLAM
  2. SUCRALFAE [Concomitant]
  3. MIRTZAPINE [Concomitant]
  4. FLUTICASONE. [Concomitant]
     Active Substance: FLUTICASONE
  5. KETOCONAZOLE. [Concomitant]
     Active Substance: KETOCONAZOLE
  6. CLOTRIM/BETA [Concomitant]
  7. PROPAFENON [Concomitant]
     Active Substance: PROPAFENONE
  8. FOLGARD [Concomitant]
  9. HYDROCO/APAP [Concomitant]
     Active Substance: ACETAMINOPHEN\HYDROCODONE
  10. ADVAIR HFA [Concomitant]
     Active Substance: FLUTICASONE PROPIONATE\SALMETEROL XINAFOATE
  11. METOPROLOL. [Concomitant]
     Active Substance: METOPROLOL
  12. PANTOPRAZOLE [Concomitant]
     Active Substance: PANTOPRAZOLE
  13. CELEXA [Concomitant]
     Active Substance: CITALOPRAM HYDROBROMIDE
  14. BUMETIDE [Concomitant]
  15. METHOCARBAM [Concomitant]
  16. PROAIR HFA [Concomitant]
     Active Substance: ALBUTEROL SULFATE
  17. SIMVASTATIN. [Concomitant]
     Active Substance: SIMVASTATIN
  18. TAMSULOSIN [Concomitant]
     Active Substance: TAMSULOSIN
  19. DIPHEN/ATROP [Concomitant]
     Active Substance: ATROPINE SULFATE\DIPHENOXYLATE
  20. OPSUMITE [Concomitant]
  21. MYRBETRIQ [Concomitant]
     Active Substance: MIRABEGRON
  22. ADCIRCA [Suspect]
     Active Substance: TADALAFIL
     Indication: HYPERLIPIDAEMIA
     Route: 048
     Dates: start: 20171227
  23. ESCITALOPRAM [Concomitant]
     Active Substance: ESCITALOPRAM OXALATE
  24. CREON [Concomitant]
     Active Substance: PANCRELIPASE AMYLASE\PANCRELIPASE LIPASE\PANCRELIPASE PROTEASE

REACTIONS (1)
  - Death [None]
